FAERS Safety Report 7276590-0 (Version None)
Quarter: 2011Q1

REPORT INFORMATION
  Report Type: 
  Country: None (occurrence: None)
  Receive Date: 20110204
  Receipt Date: 20101118
  Transmission Date: 20110831
  Serious: Yes (Death)
  Sender: FDA-Public Use
  Company Number: JP-ABBOTT-10P-087-0686911-00

PATIENT
  Age: 84 Year
  Sex: Male
  Weight: 56 kg

DRUGS (5)
  1. BICALUTAMIDE [Concomitant]
     Indication: PROSTATE CANCER STAGE IV
     Route: 048
     Dates: start: 20090623, end: 20090714
  2. ESTRAMUSTINE PHOSPHATE SODIUM [Concomitant]
     Indication: PROSTATE CANCER STAGE IV
     Route: 048
     Dates: start: 20090714, end: 20090915
  3. FLUTAMIDE [Concomitant]
     Indication: PROSTATE CANCER STAGE IV
     Route: 048
     Dates: start: 20080617, end: 20090623
  4. NU LOTAN [Concomitant]
     Indication: HYPERTENSION
     Route: 048
     Dates: end: 20090915
  5. LEUPLIN SR FOR INJECTION 11.25 MG [Suspect]
     Indication: PROSTATE CANCER STAGE IV
     Route: 058
     Dates: start: 20080624, end: 20090915

REACTIONS (1)
  - PROSTATE CANCER STAGE IV [None]
